FAERS Safety Report 5407986-7 (Version None)
Quarter: 2007Q3

REPORT INFORMATION
  Report Type: 
  Country: None (occurrence: None)
  Receive Date: 20070803
  Receipt Date: 20070719
  Transmission Date: 20080115
  Serious: Yes (Other)
  Sender: FDA-Public Use
  Company Number: GXKR2007GB06259

PATIENT
  Age: 53 Year
  Sex: Male

DRUGS (10)
  1. PARACETAMOL (NGX) (PARACETAMOL) UNKNOWN [Suspect]
     Indication: ANALGESIA
  2. GENTAMICIN [Suspect]
  3. METRONIDAZOLE [Suspect]
  4. LEVOFLOXACIN [Suspect]
  5. VANCOMYCIN [Suspect]
  6. AUGMENTIN '125' [Suspect]
  7. DICLOFENAC (DICLOFENAC) [Concomitant]
  8. OMEPRAZOLE [Concomitant]
  9. METOCLOPRAMIDE [Concomitant]
  10. PARENTERAL NUTRITION (PARENTERAL NUTRITION) [Concomitant]

REACTIONS (7)
  - ABSCESS [None]
  - ANION GAP INCREASED [None]
  - DISORIENTATION [None]
  - GENERAL PHYSICAL HEALTH DETERIORATION [None]
  - METABOLIC ACIDOSIS [None]
  - MYOCARDIAL INFARCTION [None]
  - URINE ABNORMALITY [None]
